FAERS Safety Report 4364036-1 (Version None)
Quarter: 2004Q2

REPORT INFORMATION
  Report Type: 
  Country: None (occurrence: None)
  Receive Date: 20040519
  Receipt Date: 20040510
  Transmission Date: 20050107
  Serious: Yes (Hospitalization, Other)
  Sender: FDA-Public Use
  Company Number: 2004206095JP

PATIENT
  Age: 54 Year
  Sex: Female
  Weight: 60 kg

DRUGS (3)
  1. PROVERA [Suspect]
     Indication: HORMONE REPLACEMENT THERAPY
     Dosage: 5 MG, QD, ORAL
     Route: 048
     Dates: start: 19960420, end: 19980401
  2. PREMARIN [Suspect]
     Indication: HORMONE REPLACEMENT THERAPY
     Dosage: 0.3125 MG, QD, ORAL; 0.625 MG, QD, ORAL
     Route: 048
     Dates: start: 19960412, end: 19971121
  3. PREMARIN [Suspect]
     Indication: HORMONE REPLACEMENT THERAPY
     Dosage: 0.3125 MG, QD, ORAL; 0.625 MG, QD, ORAL
     Route: 048
     Dates: start: 19971122, end: 19980401

REACTIONS (1)
  - BREAST CANCER [None]
